FAERS Safety Report 17527365 (Version 6)
Quarter: 2020Q2

REPORT INFORMATION
  Report Type: Report from Study
  Country: DE (occurrence: DE)
  Receive Date: 20200311
  Receipt Date: 20200616
  Transmission Date: 20200713
  Serious: Yes (Hospitalization)
  Sender: FDA-Public Use
  Company Number: DE-B.I. PHARMACEUTICALS,INC./RIDGEFIELD-2020-BI-013019

PATIENT
  Age: 51 Year
  Sex: Male
  Weight: 63.3 kg

DRUGS (2)
  1. DOCETAXEL. [Suspect]
     Active Substance: DOCETAXEL
     Indication: LUNG ADENOCARCINOMA
     Dosage: FORMULATION: LIQUID
     Route: 042
  2. VARGATEF [Suspect]
     Active Substance: NINTEDANIB
     Indication: LUNG ADENOCARCINOMA
     Route: 048

REACTIONS (4)
  - Ileus [Not Recovered/Not Resolved]
  - Abdominal pain [Not Recovered/Not Resolved]
  - Febrile neutropenia [Recovered/Resolved]
  - Platelet count decreased [Recovered/Resolved]

NARRATIVE: CASE EVENT DATE: 20200227
